FAERS Safety Report 4705233-2 (Version None)
Quarter: 2005Q3

REPORT INFORMATION
  Report Type: 
  Country: None (occurrence: None)
  Receive Date: 20050701
  Receipt Date: 20050309
  Transmission Date: 20060218
  Serious: Yes (Death)
  Sender: FDA-Public Use
  Company Number: JP-ROCHE-398613

PATIENT
  Age: 4 Year
  Sex: Male

DRUGS (2)
  1. TAMIFLU [Suspect]
     Indication: INFLUENZA
     Route: 048
     Dates: start: 20050315, end: 20050315
  2. CALONAL [Concomitant]
     Indication: DRUG USE FOR UNKNOWN INDICATION
     Route: 048
     Dates: start: 20050302

REACTIONS (7)
  - ANAPHYLACTIC SHOCK [None]
  - BLOOD CREATINE PHOSPHOKINASE INCREASED [None]
  - BRAIN DEATH [None]
  - CARDIAC ARREST [None]
  - CHEST PAIN [None]
  - INFLUENZA [None]
  - MYOGLOBIN BLOOD INCREASED [None]
